FAERS Safety Report 16646409 (Version 2)
Quarter: 2020Q3

REPORT INFORMATION
  Report Type: Spontaneous
  Country: US (occurrence: US)
  Receive Date: 20190730
  Receipt Date: 20200910
  Transmission Date: 20201102
  Serious: No
  Sender: FDA-Public Use
  Company Number: US-AMGEN-USASP2019118839

PATIENT
  Age: 69 Year
  Sex: Female

DRUGS (2)
  1. PROLIA [Suspect]
     Active Substance: DENOSUMAB
     Indication: OSTEOPOROSIS POSTMENOPAUSAL
  2. PROLIA [Suspect]
     Active Substance: DENOSUMAB
     Indication: OSTEOPOROSIS
     Dosage: UNK
     Route: 065
     Dates: start: 201901

REACTIONS (5)
  - Noninfective gingivitis [Unknown]
  - Bruxism [Not Recovered/Not Resolved]
  - Oral disorder [Unknown]
  - Toothache [Not Recovered/Not Resolved]
  - Endodontic procedure [Not Recovered/Not Resolved]

NARRATIVE: CASE EVENT DATE: 2019
